FAERS Safety Report 14146818 (Version 3)
Quarter: 2018Q1

REPORT INFORMATION
  Report Type: Report from Study
  Country: BR (occurrence: BR)
  Receive Date: 20171031
  Receipt Date: 20180209
  Transmission Date: 20180508
  Serious: Yes (Other)
  Sender: FDA-Public Use
  Company Number: BR-ALEXION PHARMACEUTICALS INC.-A201711910

PATIENT
  Age: 73 Year
  Sex: Male

DRUGS (2)
  1. SOLIRIS [Suspect]
     Active Substance: ECULIZUMAB
     Indication: PAROXYSMAL NOCTURNAL HAEMOGLOBINURIA
     Dosage: 600 MG, QW
     Route: 042
     Dates: start: 20160524, end: 20160614
  2. SOLIRIS [Suspect]
     Active Substance: ECULIZUMAB
     Dosage: 900 MG, Q2W
     Route: 042
     Dates: start: 20160621

REACTIONS (8)
  - Asthenia [Not Recovered/Not Resolved]
  - Chromaturia [Not Recovered/Not Resolved]
  - Eating disorder [Unknown]
  - Impaired quality of life [Not Recovered/Not Resolved]
  - Headache [Not Recovered/Not Resolved]
  - Haemoglobinuria [Not Recovered/Not Resolved]
  - Fatigue [Not Recovered/Not Resolved]
  - Decreased appetite [Not Recovered/Not Resolved]

NARRATIVE: CASE EVENT DATE: 201710
